FAERS Safety Report 11123594 (Version 2)
Quarter: 2015Q3

REPORT INFORMATION
  Report Type: Spontaneous
  Country: US (occurrence: US)
  Receive Date: 20150519
  Receipt Date: 20150724
  Transmission Date: 20151125
  Serious: No
  Sender: FDA-Public Use
  Company Number: US-LUNDBECK-DKLU1112467

PATIENT
  Age: 76 Year
  Sex: Female

DRUGS (2)
  1. NORTHERA [Suspect]
     Active Substance: DROXIDOPA
     Indication: MULTIPLE SYSTEM ATROPHY
     Route: 048
  2. NORTHERA [Suspect]
     Active Substance: DROXIDOPA
     Indication: ORTHOSTATIC HYPOTENSION
     Route: 048
     Dates: start: 201504

REACTIONS (9)
  - Urinary tract infection [Unknown]
  - Dizziness [Unknown]
  - Dyskinesia [Unknown]
  - Drug ineffective [Unknown]
  - Tremor [Unknown]
  - Fatigue [Unknown]
  - Balance disorder [Unknown]
  - Muscular weakness [Unknown]
  - Blood pressure increased [Unknown]
